FAERS Safety Report 14226910 (Version 3)
Quarter: 2018Q2

REPORT INFORMATION
  Report Type: Spontaneous
  Country: FR (occurrence: FR)
  Receive Date: 20171127
  Receipt Date: 20180502
  Transmission Date: 20180711
  Serious: Yes (Death, Hospitalization)
  Sender: FDA-Public Use
  Company Number: FR-JNJFOC-20171129003

PATIENT
  Age: 32 Year
  Sex: Male
  Weight: 74 kg

DRUGS (3)
  1. TREVICTA [Suspect]
     Active Substance: PALIPERIDONE PALMITATE
     Indication: SCHIZOPHRENIA
     Route: 030
  2. TREVICTA [Suspect]
     Active Substance: PALIPERIDONE PALMITATE
     Indication: SCHIZOPHRENIA
     Route: 030
  3. TREVICTA [Suspect]
     Active Substance: PALIPERIDONE PALMITATE
     Indication: SCHIZOPHRENIA
     Route: 030
     Dates: start: 20170831, end: 20170831

REACTIONS (4)
  - Completed suicide [Fatal]
  - Suicidal ideation [Unknown]
  - Anxiety [Unknown]
  - Sleep disorder [Unknown]

NARRATIVE: CASE EVENT DATE: 201711
